FAERS Safety Report 22045498 (Version 2)
Quarter: 2023Q1

REPORT INFORMATION
  Report Type: Spontaneous
  Country: US (occurrence: US)
  Receive Date: 20230228
  Receipt Date: 20230324
  Transmission Date: 20230418
  Serious: No
  Sender: FDA-Public Use
  Company Number: US-ALKERMES INC.-ALK-2023-000848

PATIENT
  Sex: Male
  Weight: 113.38 kg

DRUGS (3)
  1. LYBALVI [Suspect]
     Active Substance: OLANZAPINE\SAMIDORPHAN L-MALATE
     Indication: Schizophrenia
     Dosage: 15/10 MILLIGRAM, QD
     Route: 048
     Dates: start: 20230105
  2. LYBALVI [Suspect]
     Active Substance: OLANZAPINE\SAMIDORPHAN L-MALATE
     Dosage: 10/10 MILLIGRAM, QD
     Route: 048
     Dates: start: 202210
  3. BISOPROLOL FUMARATE\HYDROCHLOROTHIAZIDE [Concomitant]
     Active Substance: BISOPROLOL FUMARATE\HYDROCHLOROTHIAZIDE
     Indication: Hypertension
     Dosage: UNK
     Route: 065

REACTIONS (1)
  - Hallucination, auditory [Recovering/Resolving]
